FAERS Safety Report 6707125-6 (Version None)
Quarter: 2010Q2

REPORT INFORMATION
  Report Type: 
  Country: None (occurrence: None)
  Receive Date: 20100503
  Receipt Date: 20100429
  Transmission Date: 20101027
  Serious: Yes (Other)
  Sender: FDA-Public Use
  Company Number: GB-BRISTOL-MYERS SQUIBB COMPANY-14899835

PATIENT
  Age: 53 Year
  Sex: Male
  Weight: 98 kg

DRUGS (7)
  1. SUSTIVA [Suspect]
     Indication: ANTIRETROVIRAL THERAPY
     Dosage: 8MAR00-3JUL01 4JUL01-30SE04 1OC04-3APR05 4AP-29MA05 30MA05-22MA08 23MA-15JUN08 16JUN08-14DE09
     Dates: start: 20000308, end: 20091201
  2. REYATAZ [Suspect]
     Indication: ANTIRETROVIRAL THERAPY
     Dosage: 1OC04-3APR05 4AP-29MAY05 30MAY05-22MAY08 23MAY-15JUN08 16JUN08-14DE09
     Dates: start: 20041001, end: 20091214
  3. ABACAVIR [Suspect]
     Indication: ANTIRETROVIRAL THERAPY
     Dosage: 8MAR00-3JUL01 4JUL01-30SE04 1OC04-3APR05 4AP-29MAY05 30MAY05-22MAY08
     Dates: start: 20000308, end: 20080522
  4. RITONAVIR [Suspect]
     Indication: ANTIRETROVIRAL THERAPY
     Dosage: 18FE-28JUL97 29JUL-7MAR00 1OC04-3AP05 4AP-29MAY05 30MAY05-22MA08 23MA-15JUN08 16JUN08-14DE09
     Dates: start: 19970218, end: 20091215
  5. KALETRA [Suspect]
     Indication: ANTIRETROVIRAL THERAPY
     Dosage: 8MAR00-3JUL01 4JUL01-30SEP04
     Dates: start: 20000308, end: 20040930
  6. KIVEXA [Suspect]
     Indication: ANTIRETROVIRAL THERAPY
     Dosage: 1 DF= 600MG+ 300MG 5NO96-17FE97 8MAR00-3JUL01 4JUL01-30SE04 1OC04-3APR05 4AP05-29MA05 30MA05-
     Dates: start: 19961105, end: 20080522
  7. VIREAD [Concomitant]
     Dates: start: 20080523

REACTIONS (3)
  - ABNORMAL DREAMS [None]
  - DIARRHOEA [None]
  - MYOCARDIAL INFARCTION [None]
